FAERS Safety Report 5474490-X (Version None)
Quarter: 2007Q3

REPORT INFORMATION
  Report Type: 
  Country: None (occurrence: None)
  Receive Date: 20070928
  Receipt Date: 20070928
  Transmission Date: 20080115
  Serious: Yes (Hospitalization)
  Sender: FDA-Public Use
  Company Number: None

PATIENT
  Sex: Male
  Weight: 81.4 kg

DRUGS (4)
  1. FLUOROURACIL [Suspect]
     Dosage: 4884 MG
     Dates: start: 20070912
  2. BEVACIZUMAB (RHUMAB VEGF) [Suspect]
     Dosage: 448 MG
     Dates: start: 20070912
  3. LEUCOVORIN CALCIUM [Suspect]
     Dosage: 872 MG
     Dates: start: 20070912
  4. ELOXATIN [Suspect]
     Dosage: 142 MG
     Dates: start: 20070912

REACTIONS (4)
  - DEHYDRATION [None]
  - DIARRHOEA [None]
  - HYPOKALAEMIA [None]
  - HYPOTENSION [None]
